FAERS Safety Report 8011636-3 (Version None)
Quarter: 2011Q4

REPORT INFORMATION
  Report Type: 
  Country: None (occurrence: None)
  Receive Date: 20111228
  Receipt Date: 20111220
  Transmission Date: 20120403
  Serious: Yes (Other)
  Sender: FDA-Public Use
  Company Number: ES-BAXTER-2011BH040277

PATIENT
  Age: 42 Year
  Sex: Male

DRUGS (8)
  1. CYCLOPHOSPHAMIDE [Suspect]
     Indication: WEGENER'S GRANULOMATOSIS
     Route: 048
     Dates: start: 20040101
  2. PREDNISONE TAB [Suspect]
     Indication: WEGENER'S GRANULOMATOSIS
     Route: 048
     Dates: start: 20070101
  3. MYCOPHENOLATE MOFETIL [Suspect]
     Route: 065
     Dates: start: 20080101
  4. CYCLOPHOSPHAMIDE [Suspect]
     Indication: WEGENER'S GRANULOMATOSIS
     Route: 042
     Dates: start: 20070101
  5. CYCLOPHOSPHAMIDE [Suspect]
     Route: 042
     Dates: start: 20080101
  6. PREDNISONE TAB [Suspect]
     Route: 065
     Dates: start: 20080101
  7. MYCOPHENOLATE MOFETIL [Suspect]
     Indication: WEGENER'S GRANULOMATOSIS
     Route: 065
  8. RITUXIMAB [Suspect]
     Indication: WEGENER'S GRANULOMATOSIS
     Route: 065
     Dates: start: 20080101

REACTIONS (1)
  - COLON NEOPLASM [None]
